FAERS Safety Report 15395675 (Version 1)
Quarter: 2018Q3

REPORT INFORMATION
  Report Type: Spontaneous
  Country: US (occurrence: US)
  Receive Date: 20180912
  Receipt Date: 20180912
  Transmission Date: 20181010
  Serious: Yes (Disabling, Other)
  Sender: FDA-Public Use
  Company Number: None

PATIENT
  Age: 59 Year

DRUGS (3)
  1. MAGNEVIST [Suspect]
     Active Substance: GADOPENTETATE DIMEGLUMINE
     Indication: ARTHRALGIA
     Dosage: 0.1 EC X 2 MIXED OMNIPAQUE INTO RIGHT HIP JOINT?
  2. MAGNEVIST [Suspect]
     Active Substance: GADOPENTETATE DIMEGLUMINE
     Indication: SPINAL COLUMN STENOSIS
     Route: 042
  3. MAGNEVIST [Suspect]
     Active Substance: GADOPENTETATE DIMEGLUMINE
     Indication: MUSCULAR WEAKNESS
     Dosage: 0.1 EC X 2 MIXED OMNIPAQUE INTO RIGHT HIP JOINT?

REACTIONS (17)
  - Malaise [None]
  - Tinnitus [None]
  - Anhedonia [None]
  - Intermittent claudication [None]
  - Anxiety [None]
  - Spinal disorder [None]
  - Headache [None]
  - Muscle spasms [None]
  - Paranoia [None]
  - Blood pressure fluctuation [None]
  - Skin burning sensation [None]
  - Tremor [None]
  - Retinal disorder [None]
  - Temporomandibular joint syndrome [None]
  - Balance disorder [None]
  - Arthralgia [None]
  - Fibrosis [None]

NARRATIVE: CASE EVENT DATE: 20170519
